FAERS Safety Report 4674013-9 (Version None)
Quarter: 2005Q2

REPORT INFORMATION
  Report Type: 
  Country: None (occurrence: None)
  Receive Date: 20050525
  Receipt Date: 20050509
  Transmission Date: 20051028
  Serious: Yes (Hospitalization)
  Sender: FDA-Public Use
  Company Number: GBR-2005-0001695

PATIENT
  Age: 57 Year
  Sex: Female

DRUGS (1)
  1. OXYCONTIN [Suspect]
     Indication: PAIN
     Dosage: 20 MG, BID, ORAL
     Route: 048
     Dates: start: 20050308, end: 20050317

REACTIONS (4)
  - AFFECT LABILITY [None]
  - DRUG WITHDRAWAL SYNDROME [None]
  - HALLUCINATIONS, MIXED [None]
  - PANIC ATTACK [None]
